FAERS Safety Report 4567229-3 (Version None)
Quarter: 2005Q1

REPORT INFORMATION
  Report Type: 
  Country: None (occurrence: None)
  Receive Date: 20050127
  Receipt Date: 20050114
  Transmission Date: 20050727
  Serious: Yes (Hospitalization)
  Sender: FDA-Public Use
  Company Number: 2005UW00699

PATIENT
  Age: 46 Year
  Sex: Male

DRUGS (3)
  1. CRESTOR [Suspect]
     Dosage: 10 MG QD PO
     Route: 048
     Dates: end: 20040101
  2. ZYPREXA [Concomitant]
  3. ZOLOFT [Concomitant]

REACTIONS (8)
  - ENCEPHALOPATHY [None]
  - FALL [None]
  - GRAND MAL CONVULSION [None]
  - HYPONATRAEMIA [None]
  - PNEUMONIA [None]
  - POLYDIPSIA [None]
  - RHABDOMYOLYSIS [None]
  - SEPSIS [None]
